FAERS Safety Report 9039269 (Version 1)
Quarter: 2013Q1

REPORT INFORMATION
  Report Type: Spontaneous
  Country: US (occurrence: None)
  Receive Date: 20130123
  Receipt Date: 20130123
  Transmission Date: 20140127
  Serious: Yes (Other)
  Sender: FDA-Public Use
  Company Number: None

PATIENT
  Sex: Female

DRUGS (1)
  1. XELODA [Suspect]
     Indication: NEOPLASM MALIGNANT
     Dosage: 400MG  BID X7DON, 7D OFF  PO
     Route: 048
     Dates: start: 2010

REACTIONS (3)
  - Chest pain [None]
  - Neck pain [None]
  - Paraesthesia [None]
